FAERS Safety Report 7466287-6 (Version None)
Quarter: 2011Q2

REPORT INFORMATION
  Report Type: 
  Country: None (occurrence: None)
  Receive Date: 20110509
  Receipt Date: 20100726
  Transmission Date: 20111010
  Serious: No
  Sender: FDA-Public Use
  Company Number: US-ALEXION-A201000899

PATIENT
  Sex: Male

DRUGS (9)
  1. NORVASC [Concomitant]
  2. RESTORIL                           /00393701/ [Concomitant]
  3. CALCIUM [Concomitant]
  4. FOLIC ACID [Concomitant]
  5. VITAMIN B12                        /00056201/ [Concomitant]
  6. SOLIRIS [Suspect]
     Indication: PAROXYSMAL NOCTURNAL HAEMOGLOBINURIA
     Dosage: 900 MG, Q2W
     Route: 042
  7. CASODEX [Concomitant]
  8. PAXIL [Concomitant]
  9. PREVACID [Concomitant]

REACTIONS (1)
  - HAEMOGLOBIN DECREASED [None]
